FAERS Safety Report 14927149 (Version 1)
Quarter: 2018Q2

REPORT INFORMATION
  Report Type: Spontaneous
  Country: US (occurrence: US)
  Receive Date: 20180504
  Receipt Date: 20180504
  Transmission Date: 20180711
  Serious: Yes (Hospitalization)
  Sender: FDA-Public Use
  Company Number: None

PATIENT
  Age: 51 Year
  Sex: Male

DRUGS (22)
  1. FUROSEMIDE. [Concomitant]
     Active Substance: FUROSEMIDE
  2. LANTUS [Concomitant]
     Active Substance: INSULIN GLARGINE
  3. VELTASSA [Concomitant]
     Active Substance: PATIROMER
  4. METOPROL TAR [Concomitant]
  5. AMLODIPINE [Concomitant]
     Active Substance: AMLODIPINE BESYLATE
  6. DULOXETINE. [Concomitant]
     Active Substance: DULOXETINE
  7. SPRYCEL [Suspect]
     Active Substance: DASATINIB
     Indication: ACUTE LYMPHOCYTIC LEUKAEMIA
     Route: 048
     Dates: start: 20170502
  8. CYMBALTA [Concomitant]
     Active Substance: DULOXETINE HYDROCHLORIDE
  9. LIPITOR [Concomitant]
     Active Substance: ATORVASTATIN CALCIUM
  10. CALCIFEROL [Concomitant]
     Active Substance: ERGOCALCIFEROL
  11. NOVOLOG [Concomitant]
     Active Substance: INSULIN ASPART
  12. FAMOTIDINE. [Concomitant]
     Active Substance: FAMOTIDINE
  13. CYCLOBENZAPR [Concomitant]
     Active Substance: CYCLOBENZAPRINE
  14. ASPIRIN. [Concomitant]
     Active Substance: ASPIRIN
  15. NORVASC [Concomitant]
     Active Substance: AMLODIPINE BESYLATE
  16. LOSARTAN POT [Concomitant]
     Active Substance: LOSARTAN POTASSIUM
  17. FUROSEMIDE. [Concomitant]
     Active Substance: FUROSEMIDE
  18. ATORVASTATIN [Concomitant]
     Active Substance: ATORVASTATIN
  19. CLOPIDOGREL [Concomitant]
     Active Substance: CLOPIDOGREL BISULFATE
  20. POT CHLORIDE [Concomitant]
     Active Substance: POTASSIUM CHLORIDE
  21. APAP/CODEINE [Concomitant]
     Active Substance: ACETAMINOPHEN\CODEINE PHOSPHATE
  22. HYDROCO/APAP [Concomitant]
     Active Substance: ACETAMINOPHEN\HYDROCODONE

REACTIONS (1)
  - Drug dose omission [None]

NARRATIVE: CASE EVENT DATE: 201804
